FAERS Safety Report 4834129-0 (Version None)
Quarter: 2005Q4

REPORT INFORMATION
  Report Type: 
  Country: None (occurrence: None)
  Receive Date: 20051122
  Receipt Date: 20051031
  Transmission Date: 20060501
  Serious: Yes (Hospitalization)
  Sender: FDA-Public Use
  Company Number: US-AMGEN-US156329

PATIENT
  Sex: Male

DRUGS (1)
  1. ARANESP [Suspect]
     Indication: DIALYSIS

REACTIONS (3)
  - HAEMOGLOBIN DECREASED [None]
  - HAEMORRHAGE [None]
  - RED BLOOD CELL SEDIMENTATION RATE DECREASED [None]
